FAERS Safety Report 6067195-8 (Version None)
Quarter: 2009Q1

REPORT INFORMATION
  Report Type: 
  Country: None (occurrence: None)
  Receive Date: 20090205
  Receipt Date: 20090122
  Transmission Date: 20090719
  Serious: Yes (Hospitalization, Other)
  Sender: FDA-Public Use
  Company Number: PHHY2009CA01734

PATIENT
  Sex: Female

DRUGS (5)
  1. CLOZARIL [Interacting]
     Indication: SCHIZOPHRENIA
     Dosage: 325 MG DAILY
     Route: 048
     Dates: start: 20070907
  2. LITHIUM CARBONATE [Suspect]
     Dosage: UNK
  3. CLONAZEPAM [Concomitant]
     Route: 065
  4. MUSCLE RELAXANTS [Concomitant]
     Route: 065
  5. ANESTHETICS NOS [Concomitant]
     Route: 065

REACTIONS (3)
  - DRUG INTERACTION [None]
  - GASTROINTESTINAL DISORDER [None]
  - SEDATION [None]
